FAERS Safety Report 6100108-9 (Version None)
Quarter: 2009Q1

REPORT INFORMATION
  Report Type: 
  Country: None (occurrence: None)
  Receive Date: 20090303
  Receipt Date: 20090223
  Transmission Date: 20090719
  Serious: Yes (Hospitalization)
  Sender: FDA-Public Use
  Company Number: FR-AVENTIS-200910704FR

PATIENT
  Age: 75 Year
  Sex: Male

DRUGS (4)
  1. LASIX [Suspect]
     Route: 048
  2. MONO-TILDIEM [Suspect]
     Route: 048
  3. INIPOMP                            /01263201/ [Concomitant]
     Indication: DUODENITIS
     Route: 048
  4. SIMVASTATIN [Concomitant]
     Route: 048

REACTIONS (5)
  - AGITATION [None]
  - CONFUSIONAL STATE [None]
  - FALL [None]
  - TIBIA FRACTURE [None]
  - TRAUMATIC FRACTURE [None]
